FAERS Safety Report 8298949-5 (Version None)
Quarter: 2012Q2

REPORT INFORMATION
  Report Type: 
  Country: None (occurrence: None)
  Receive Date: 20120419
  Receipt Date: 20120416
  Transmission Date: 20120825
  Serious: Yes (Other)
  Sender: FDA-Public Use
  Company Number: PHEH2012US008197

PATIENT
  Sex: Male
  Weight: 81.647 kg

DRUGS (1)
  1. DIOVAN [Suspect]
     Dosage: 320 MG, ONCE DAILY
     Dates: start: 20060105

REACTIONS (1)
  - BRAIN NEOPLASM [None]
